FAERS Safety Report 9653195 (Version 9)
Quarter: 2015Q2

REPORT INFORMATION
  Report Type: Spontaneous
  Country: US (occurrence: US)
  Receive Date: 20131029
  Receipt Date: 20150417
  Transmission Date: 20150821
  Serious: Yes (Hospitalization, Other)
  Sender: FDA-Public Use
  Company Number: US-GLAXOSMITHKLINE-A1047394A

PATIENT
  Age: 56 Year
  Sex: Female

DRUGS (9)
  1. FLOLAN [Suspect]
     Active Substance: EPOPROSTENOL SODIUM
     Dosage: 17 NG/KG/MIN, CONCENTRATION 15,000 NG/ML, PUMP RATE 82 ML/DAY, VIAL STRENGTH 1.5 MG, CO
     Route: 042
  2. FLOLAN [Suspect]
     Active Substance: EPOPROSTENOL SODIUM
     Dosage: 17NG/KG/MIN (CONCENTRATION 15,000 NG/ML, UNK PUMP RATE, VIAL STRENGTH 1.5 MG), CO
     Route: 042
  3. FLOLAN [Suspect]
     Active Substance: EPOPROSTENOL SODIUM
     Dosage: UNK
     Dates: start: 20101105
  4. FLOLAN [Suspect]
     Active Substance: EPOPROSTENOL SODIUM
     Indication: PULMONARY HYPERTENSION
     Dosage: UNK
     Dates: start: 20101105
  5. FLOLAN [Suspect]
     Active Substance: EPOPROSTENOL SODIUM
     Dosage: UNK
     Dates: start: 20101105
  6. FLOLAN [Suspect]
     Active Substance: EPOPROSTENOL SODIUM
     Indication: COR PULMONALE CHRONIC
     Dosage: 15 NG/KG/MIN CONTINUOUSLY (CONCENTRATION 15,000 NG/ML; 1.5 MG VIAL STRENGTH)16 NG/KG/MIN CONTIN[...]
     Route: 042
     Dates: start: 20101101
  7. FLOLAN [Suspect]
     Active Substance: EPOPROSTENOL SODIUM
     Dosage: UNK
     Dates: start: 20101105
  8. FLOLAN [Suspect]
     Active Substance: EPOPROSTENOL SODIUM
     Dosage: UNK
  9. REVATIO [Concomitant]
     Active Substance: SILDENAFIL CITRATE

REACTIONS (14)
  - Dyspnoea [Unknown]
  - Malaise [Unknown]
  - Pyrexia [Unknown]
  - Device leakage [Unknown]
  - Pneumonia [Unknown]
  - Platelet count decreased [Unknown]
  - Device related infection [Recovered/Resolved]
  - Infusion site irritation [Recovered/Resolved]
  - Oxygen saturation decreased [Unknown]
  - Device breakage [Not Recovered/Not Resolved]
  - Wrong technique in drug usage process [Unknown]
  - Pulmonary arterial hypertension [Unknown]
  - Feeling abnormal [Unknown]
  - Pneumonitis [Unknown]

NARRATIVE: CASE EVENT DATE: 20131003
